FAERS Safety Report 4722981-9 (Version None)
Quarter: 2005Q3

REPORT INFORMATION
  Report Type: 
  Country: None (occurrence: None)
  Receive Date: 20050719
  Receipt Date: 20040928
  Transmission Date: 20060218
  Serious: Yes (Other)
  Sender: FDA-Public Use
  Company Number: 2003147755US

PATIENT
  Sex: Male

DRUGS (1)
  1. CELEBREX [Suspect]
     Indication: BACK PAIN
     Dates: start: 19990917, end: 20000501

REACTIONS (2)
  - GASTROINTESTINAL HAEMORRHAGE [None]
  - ULCER [None]
